FAERS Safety Report 6646237-2 (Version None)
Quarter: 2010Q1

REPORT INFORMATION
  Report Type: 
  Country: None (occurrence: None)
  Receive Date: 20100323
  Receipt Date: 20100218
  Transmission Date: 20100710
  Serious: No
  Sender: FDA-Public Use
  Company Number: US-BAYER-201012144BCC

PATIENT
  Age: 48 Year
  Sex: Female
  Weight: 57 kg

DRUGS (3)
  1. ALEVE (CAPLET) [Suspect]
     Indication: MUSCLE STRAIN
     Dosage: TOTAL DAILY DOSE: 880 MG  UNIT DOSE: 220 MG
     Route: 048
     Dates: start: 20100210, end: 20100213
  2. ALEVE (CAPLET) [Suspect]
     Dosage: TOTAL DAILY DOSE: 220 MG  UNIT DOSE: 220 MG
     Route: 048
     Dates: start: 20100217
  3. ALEVE (CAPLET) [Suspect]
     Dosage: TOTAL DAILY DOSE: 440 MG  UNIT DOSE: 220 MG
     Route: 048
     Dates: start: 20100216, end: 20100216

REACTIONS (5)
  - FATIGUE [None]
  - FEELING ABNORMAL [None]
  - MUSCLE STRAIN [None]
  - SLUGGISHNESS [None]
  - SOMNOLENCE [None]
